FAERS Safety Report 4767993-4 (Version None)
Quarter: 2005Q3

REPORT INFORMATION
  Report Type: 
  Country: None (occurrence: None)
  Receive Date: 20050912
  Receipt Date: 20050906
  Transmission Date: 20060218
  Serious: Yes (Hospitalization, Other)
  Sender: FDA-Public Use
  Company Number: 200511771BWH

PATIENT
  Age: 46 Year
  Sex: Male

DRUGS (8)
  1. LEVITRA [Suspect]
     Indication: ERECTILE DYSFUNCTION
     Dosage: 10 MG, TOTAL DAILY, ORAL
     Route: 048
     Dates: start: 20041001
  2. VIVACTIL [Concomitant]
  3. CYMBALTA [Concomitant]
  4. PROTONIX [Concomitant]
  5. TOPAMAX [Concomitant]
  6. TRICOR [Concomitant]
  7. HYDROCODONE W/APAP [Concomitant]
  8. CLONAZEPAM [Concomitant]

REACTIONS (4)
  - BLINDNESS UNILATERAL [None]
  - DEAFNESS UNILATERAL [None]
  - PERSONALITY CHANGE [None]
  - VISUAL FIELD DEFECT [None]
